FAERS Safety Report 25716002 (Version 2)
Quarter: 2025Q3

REPORT INFORMATION
  Report Type: Spontaneous
  Country: PK (occurrence: PK)
  Receive Date: 20250822
  Receipt Date: 20250825
  Transmission Date: 20251020
  Serious: Yes (Other)
  Sender: PFIZER
  Company Number: PK-PFIZER INC-PV202500100066

PATIENT
  Age: 35 Year
  Sex: Female
  Weight: 80 kg

DRUGS (7)
  1. RUXIENCE [Suspect]
     Active Substance: RITUXIMAB-PVVR
     Indication: Rheumatoid arthritis
     Dates: start: 202212
  2. RUXIENCE [Suspect]
     Active Substance: RITUXIMAB-PVVR
     Indication: Granulomatosis with polyangiitis
     Dates: start: 202308
  3. RUXIENCE [Suspect]
     Active Substance: RITUXIMAB-PVVR
     Dates: start: 202408
  4. RUXIENCE [Suspect]
     Active Substance: RITUXIMAB-PVVR
     Route: 042
     Dates: start: 20250220
  5. AMORIN [AZATHIOPRINE] [Concomitant]
     Dosage: 1+0+1+0, AFTER MEAL
     Dates: start: 20230119
  6. SUNNY D [Concomitant]
  7. DELTACORTRIL [Concomitant]
     Active Substance: PREDNISOLONE
     Dosage: 1+0+0+0, AFTER MEAL

REACTIONS (3)
  - Cataract subcapsular [Recovering/Resolving]
  - Conjunctival haemorrhage [Recovered/Resolved]
  - Off label use [Unknown]
